FAERS Safety Report 8840584 (Version 2)
Quarter: 2013Q2

REPORT INFORMATION
  Report Type: Report from Study
  Country: CA (occurrence: CA)
  Receive Date: 20121015
  Receipt Date: 20130509
  Transmission Date: 20140414
  Serious: Yes (Hospitalization)
  Sender: FDA-Public Use
  Company Number: CA-JNJFOC-20121007559

PATIENT
  Age: 71 Year
  Sex: Male
  Weight: 69.85 kg

DRUGS (3)
  1. STELARA [Suspect]
     Indication: PSORIASIS
     Route: 058
  2. STELARA [Suspect]
     Indication: PSORIASIS
     Route: 058
     Dates: start: 20111107
  3. LASIX [Concomitant]
     Indication: DIURETIC THERAPY

REACTIONS (3)
  - Cardiac myxoma [Recovered/Resolved]
  - Respiratory distress [Unknown]
  - Pulmonary oedema [Unknown]
